FAERS Safety Report 6509652-3 (Version None)
Quarter: 2009Q4

REPORT INFORMATION
  Report Type: 
  Country: None (occurrence: None)
  Receive Date: 20091222
  Receipt Date: 20091215
  Transmission Date: 20100525
  Serious: Yes (Hospitalization)
  Sender: FDA-Public Use
  Company Number: DE-ASTRAZENECA-2009SE32194

PATIENT
  Age: 78 Year
  Sex: Female

DRUGS (1)
  1. BELOC ZOK [Suspect]
     Indication: HYPERTENSION
     Route: 048

REACTIONS (2)
  - FEELING COLD [None]
  - PERIPHERAL COLDNESS [None]
